FAERS Safety Report 9689571 (Version 2)
Quarter: 2013Q4

REPORT INFORMATION
  Report Type: Spontaneous
  Country: FR (occurrence: FR)
  Receive Date: 20131115
  Receipt Date: 20131115
  Transmission Date: 20140711
  Serious: Yes (Other)
  Sender: FDA-Public Use
  Company Number: FR-JNJFOC-20131016226

PATIENT
  Age: 46 Year
  Sex: Female

DRUGS (6)
  1. ACTIFED JOUR ET NUIT [Suspect]
     Indication: NASAL CONGESTION
     Route: 048
  2. ACTIFED JOUR ET NUIT [Suspect]
     Indication: NASAL CONGESTION
     Route: 048
  3. DOLI RHUME [Suspect]
     Indication: NASAL CONGESTION
     Route: 048
  4. HUMEX [Suspect]
     Indication: NASAL CONGESTION
     Route: 048
  5. RHINADVIL [Suspect]
     Indication: NASAL CONGESTION
     Route: 048
  6. FERVEX [Suspect]
     Indication: NASAL CONGESTION
     Route: 048

REACTIONS (1)
  - Pulmonary arterial hypertension [Not Recovered/Not Resolved]
